FAERS Safety Report 19233345 (Version 1)
Quarter: 2021Q2

REPORT INFORMATION
  Report Type: Other
  Country: JP (occurrence: JP)
  Receive Date: 20210507
  Receipt Date: 20210507
  Transmission Date: 20210717
  Serious: Yes (Other)
  Sender: FDA-Public Use
  Company Number: JP-ROCHE-2824404

PATIENT

DRUGS (7)
  1. TOCILIZUMAB. [Suspect]
     Active Substance: TOCILIZUMAB
     Indication: RHEUMATOID ARTHRITIS
     Route: 065
  2. ABATACEPT [Suspect]
     Active Substance: ABATACEPT
     Indication: RHEUMATOID ARTHRITIS
     Route: 065
  3. ETANERCEPT [Suspect]
     Active Substance: ETANERCEPT
     Indication: RHEUMATOID ARTHRITIS
     Route: 065
  4. ADALIMUMAB [Suspect]
     Active Substance: ADALIMUMAB
     Indication: RHEUMATOID ARTHRITIS
     Route: 065
  5. GOLIMUMAB [Suspect]
     Active Substance: GOLIMUMAB
     Indication: RHEUMATOID ARTHRITIS
     Route: 065
  6. INFLIXIMAB [Suspect]
     Active Substance: INFLIXIMAB
     Indication: RHEUMATOID ARTHRITIS
     Route: 065
  7. CERTOLIZUMAB PEGOL [Suspect]
     Active Substance: CERTOLIZUMAB PEGOL
     Indication: RHEUMATOID ARTHRITIS
     Route: 065

REACTIONS (23)
  - Lymphoma [Unknown]
  - Rash [Unknown]
  - Dyspnoea [Unknown]
  - Gingival bleeding [Unknown]
  - Pyrexia [Unknown]
  - Lymphoedema [Unknown]
  - Anaphylactic reaction [Unknown]
  - Herpes zoster [Unknown]
  - Eosinophilia [Unknown]
  - Gastric adenoma [Unknown]
  - Pneumocystis jirovecii pneumonia [Unknown]
  - Pulmonary embolism [Unknown]
  - Interstitial lung disease [Unknown]
  - Cervix carcinoma [Unknown]
  - Hepatic cancer [Unknown]
  - Cytopenia [Unknown]
  - Infection [Unknown]
  - Atrial fibrillation [Unknown]
  - Pneumonia bacterial [Unknown]
  - Hepatic enzyme increased [Unknown]
  - Lupus-like syndrome [Unknown]
  - Infusion related reaction [Unknown]
  - Hypersensitivity [Unknown]
